FAERS Safety Report 16278565 (Version 2)
Quarter: 2019Q2

REPORT INFORMATION
  Report Type: Spontaneous
  Country: FR (occurrence: FR)
  Receive Date: 20190506
  Receipt Date: 20190528
  Transmission Date: 20190711
  Serious: Yes (Other)
  Sender: FDA-Public Use
  Company Number: FR-009507513-1905FRA000041

PATIENT
  Age: 27 Year
  Sex: Female
  Weight: 63 kg

DRUGS (3)
  1. NEXPLANON [Suspect]
     Active Substance: ETONOGESTREL
     Indication: CONTRACEPTION
     Dosage: 1 DOSAGE FORM IN THE RIGHT ARM
     Route: 059
     Dates: start: 201509, end: 201808
  2. NEXPLANON [Suspect]
     Active Substance: ETONOGESTREL
     Dosage: 1 UNK
     Route: 058
     Dates: start: 201808
  3. COPPER-CONTAINING INTRAUTERINE DEVICE (IUD) [Concomitant]
     Active Substance: COPPER

REACTIONS (18)
  - Vulvovaginal mycotic infection [Unknown]
  - Urinary tract infection [Unknown]
  - Vulvovaginal dryness [Unknown]
  - Complication of device removal [Recovered/Resolved]
  - Device deployment issue [Not Recovered/Not Resolved]
  - Weight increased [Unknown]
  - Complication of device removal [Not Recovered/Not Resolved]
  - Spinal cord disorder [Unknown]
  - Complication associated with device [Recovered/Resolved]
  - Chest pain [Unknown]
  - Migraine [Unknown]
  - Keloid scar [Unknown]
  - Metrorrhagia [Not Recovered/Not Resolved]
  - Haematoma [Unknown]
  - Pain in extremity [Unknown]
  - Procedural pain [Unknown]
  - General anaesthesia [Unknown]
  - Amenorrhoea [Recovered/Resolved]

NARRATIVE: CASE EVENT DATE: 201808
